FAERS Safety Report 11911921 (Version 15)
Quarter: 2017Q1

REPORT INFORMATION
  Report Type: Spontaneous
  Country: US (occurrence: US)
  Receive Date: 20160112
  Receipt Date: 20170131
  Transmission Date: 20170428
  Serious: Yes (Hospitalization)
  Sender: FDA-Public Use
  Company Number: US-ACTELION-A-NJ2016-129650

PATIENT
  Age: 52 Year
  Sex: Female

DRUGS (7)
  1. OPSUMIT [Suspect]
     Active Substance: MACITENTAN
     Indication: PULMONARY HYPERTENSION
     Dosage: 10 MG, QD
     Route: 048
     Dates: start: 20151211
  2. LASIX [Suspect]
     Active Substance: FUROSEMIDE
     Indication: FLUID RETENTION
     Route: 065
  3. CHLORAPREP [Suspect]
     Active Substance: CHLORHEXIDINE GLUCONATE\ISOPROPYL ALCOHOL
     Indication: PRODUCT USED FOR UNKNOWN INDICATION
     Route: 065
  4. VELETRI [Suspect]
     Active Substance: EPOPROSTENOL
     Indication: PULMONARY HYPERTENSION
     Dosage: 3.76 NG/KG, PER MIN
     Route: 042
     Dates: start: 20160107
  5. VELETRI [Suspect]
     Active Substance: EPOPROSTENOL
     Dosage: 4.00 NG/KG, PER MIN
     Route: 042
  6. VELETRI [Suspect]
     Active Substance: EPOPROSTENOL
     Dosage: 4.35 NG/KG, PER MIN
     Route: 042
  7. ADCIRCA [Concomitant]
     Active Substance: TADALAFIL

REACTIONS (24)
  - Allergy to vaccine [Unknown]
  - Catheter site pain [Unknown]
  - Dysgeusia [Unknown]
  - Petechiae [Unknown]
  - Fluid retention [Unknown]
  - Malaise [Unknown]
  - Application site pruritus [Not Recovered/Not Resolved]
  - Pain [Unknown]
  - Dizziness [Unknown]
  - Blood sodium decreased [Unknown]
  - Hypoaesthesia [Recovered/Resolved]
  - Catheter site inflammation [Recovering/Resolving]
  - Application site acne [Unknown]
  - Secretion discharge [Unknown]
  - Balance disorder [Unknown]
  - Catheter site rash [Unknown]
  - Right ventricular failure [Unknown]
  - Pruritus [Unknown]
  - Urine output increased [Unknown]
  - Application site erythema [Unknown]
  - Asthenia [Unknown]
  - Nausea [Unknown]
  - Blood calcium decreased [Unknown]
  - Decreased appetite [Unknown]

NARRATIVE: CASE EVENT DATE: 20160526
